FAERS Safety Report 10037704 (Version 1)
Quarter: 2014Q1

REPORT INFORMATION
  Report Type: Spontaneous
  Country: US (occurrence: US)
  Receive Date: 20140326
  Receipt Date: 20140326
  Transmission Date: 20141002
  Serious: No
  Sender: FDA-Public Use
  Company Number: US-PFIZER INC-2014082291

PATIENT
  Sex: Female

DRUGS (3)
  1. LYRICA [Suspect]
     Indication: POST HERPETIC NEURALGIA
     Dosage: 50 MG, 3X/DAY
  2. LYRICA [Suspect]
     Dosage: 150 MG, 3X/DAY
  3. LYRICA [Suspect]
     Dosage: UNK, 3X/DAY

REACTIONS (6)
  - Drug effect incomplete [Unknown]
  - Weight increased [Unknown]
  - Weight decreased [Unknown]
  - Constipation [Unknown]
  - Gingival bleeding [Unknown]
  - Gingival pain [Unknown]
